FAERS Safety Report 4809388-0 (Version None)
Quarter: 2005Q4

REPORT INFORMATION
  Report Type: 
  Country: None (occurrence: None)
  Receive Date: 20051018
  Receipt Date: 20050707
  Transmission Date: 20060501
  Serious: Yes (Other)
  Sender: FDA-Public Use
  Company Number: THYM-10752

PATIENT
  Age: 36 Year
  Sex: Male

DRUGS (5)
  1. THYMOGLOBULINE [Suspect]
  2. TACROLIMUS [Suspect]
  3. CELLCEPT [Concomitant]
  4. PREDNISONE [Concomitant]
  5. SIROLIMUS [Concomitant]

REACTIONS (4)
  - BLOOD CREATININE INCREASED [None]
  - COMPLEMENT FACTOR ABNORMAL [None]
  - GLOMERULONEPHRITIS [None]
  - THROMBOTIC THROMBOCYTOPENIC PURPURA [None]
